FAERS Safety Report 16327694 (Version 2)
Quarter: 2019Q2

REPORT INFORMATION
  Report Type: Report from Study
  Country: DE (occurrence: DE)
  Receive Date: 20190517
  Receipt Date: 20190522
  Transmission Date: 20190711
  Serious: Yes (Hospitalization, Other)
  Sender: FDA-Public Use
  Company Number: PHHY2018DE107659

PATIENT
  Sex: Male
  Weight: 76 kg

DRUGS (4)
  1. COSENTYX [Suspect]
     Active Substance: SECUKINUMAB
     Indication: PSORIATIC ARTHROPATHY
     Dosage: 300 MG, Q4W
     Route: 058
     Dates: start: 20161216, end: 20180501
  2. COSENTYX [Suspect]
     Active Substance: SECUKINUMAB
     Indication: PSORIASIS
     Dosage: 300 MG, UNK
     Route: 058
     Dates: start: 201611
  3. FOLIC ACID. [Concomitant]
     Active Substance: FOLIC ACID
     Indication: ANAEMIA MEGALOBLASTIC
     Dosage: 5 MG, UNK
     Route: 048
     Dates: start: 201804
  4. ETORICOXIB. [Concomitant]
     Active Substance: ETORICOXIB
     Indication: PRODUCT USED FOR UNKNOWN INDICATION
     Dosage: 90 MG, PRN
     Route: 048

REACTIONS (10)
  - Pruritus [Unknown]
  - Pain [Unknown]
  - Depression [Not Recovered/Not Resolved]
  - Hepatic steatosis [Unknown]
  - Nail pitting [Unknown]
  - Fatigue [Not Recovered/Not Resolved]
  - Psoriasis [Recovered/Resolved]
  - Gouty arthritis [Unknown]
  - Borrelia infection [Unknown]
  - Mycobacterium tuberculosis complex test positive [Unknown]

NARRATIVE: CASE EVENT DATE: 20161216
